APPROVED DRUG PRODUCT: FOLIC ACID
Active Ingredient: FOLIC ACID
Strength: 1MG
Dosage Form/Route: TABLET;ORAL
Application: A080680 | Product #001 | TE Code: AA
Applicant: WATSON LABORATORIES
Approved: Approved Prior to Jan 1, 1982 | RLD: Yes | RS: Yes | Type: RX